FAERS Safety Report 5522195-9 (Version None)
Quarter: 2007Q4

REPORT INFORMATION
  Report Type: 
  Country: None (occurrence: None)
  Receive Date: 20071120
  Receipt Date: 20071105
  Transmission Date: 20080405
  Serious: Yes (Hospitalization)
  Sender: FDA-Public Use
  Company Number: B0467518A

PATIENT
  Age: 46 Year
  Sex: Female

DRUGS (1)
  1. LAPATINIB [Suspect]
     Indication: BREAST CANCER
     Dosage: 250MG SIX TIMES PER DAY
     Route: 048
     Dates: start: 20070319

REACTIONS (3)
  - ANAEMIA [None]
  - DIARRHOEA [None]
  - PAIN [None]
